FAERS Safety Report 17232780 (Version 1)
Quarter: 2020Q1

REPORT INFORMATION
  Report Type: Spontaneous
  Country: DE (occurrence: DE)
  Receive Date: 20200103
  Receipt Date: 20200103
  Transmission Date: 20200409
  Serious: Yes (Other)
  Sender: FDA-Public Use
  Company Number: DE-BAUSCH-BL-2019-066757

PATIENT
  Sex: Female

DRUGS (16)
  1. DOXORUBICIN [Suspect]
     Active Substance: DOXORUBICIN
     Indication: DIFFUSE LARGE B-CELL LYMPHOMA
     Dosage: 1ST LINE, R-CHOP 6 CYCLES
     Route: 065
     Dates: start: 201710, end: 201801
  2. CISPLATIN. [Suspect]
     Active Substance: CISPLATIN
     Indication: DIFFUSE LARGE B-CELL LYMPHOMA
     Dosage: 2ND LINE THERAPY; R-GDP 1 CYCLE
     Route: 065
     Dates: start: 201811, end: 201811
  3. MELPHALAN. [Concomitant]
     Active Substance: MELPHALAN
     Indication: PRODUCT USED FOR UNKNOWN INDICATION
  4. ETOPOSIDE. [Concomitant]
     Active Substance: ETOPOSIDE
     Indication: PRODUCT USED FOR UNKNOWN INDICATION
  5. CISPLATIN. [Suspect]
     Active Substance: CISPLATIN
     Dosage: FURTHER LINE; R-DHAP 2 CYCLES.
     Route: 065
     Dates: start: 201812, end: 201901
  6. CYCLOPHOSPHAMIDE. [Suspect]
     Active Substance: CYCLOPHOSPHAMIDE
     Indication: DIFFUSE LARGE B-CELL LYMPHOMA
     Dosage: 1ST LINE, R-CHOP 6 CYCLES
     Route: 065
     Dates: start: 201710, end: 201801
  7. CYTARABINE. [Suspect]
     Active Substance: CYTARABINE
     Indication: DIFFUSE LARGE B-CELL LYMPHOMA
     Dosage: FURTHER LINES; R-DHAP 2 CYCLES
     Route: 065
     Dates: start: 201812, end: 201901
  8. DEXAMETHASONE. [Suspect]
     Active Substance: DEXAMETHASONE
     Indication: DIFFUSE LARGE B-CELL LYMPHOMA
     Dosage: 2ND LINE THERAPY; R-GDP 1 CYCLE.
     Route: 065
     Dates: start: 201811, end: 201811
  9. PREDNISONE. [Suspect]
     Active Substance: PREDNISONE
     Indication: DIFFUSE LARGE B-CELL LYMPHOMA
     Dosage: 1ST LINE, R-CHOP 6 CYCLES
     Route: 065
     Dates: start: 201710, end: 201801
  10. RITUXIMAB. [Suspect]
     Active Substance: RITUXIMAB
     Indication: DIFFUSE LARGE B-CELL LYMPHOMA
     Dosage: FURTHER LINE, R-DHAP 2 CYCLES
     Route: 065
     Dates: start: 201812, end: 201901
  11. RITUXIMAB. [Suspect]
     Active Substance: RITUXIMAB
     Dosage: 1ST LINE, R-CHOP 6 CYCLES
     Route: 065
     Dates: start: 201710, end: 201801
  12. VINCRISTINE [Suspect]
     Active Substance: VINCRISTINE
     Indication: DIFFUSE LARGE B-CELL LYMPHOMA
     Dosage: 1ST LINE, R-CHOP 6 CYCLES
     Route: 065
     Dates: start: 201710, end: 201801
  13. GEMCITABINE. [Suspect]
     Active Substance: GEMCITABINE
     Indication: DIFFUSE LARGE B-CELL LYMPHOMA
     Dosage: 2ND LINE THERAPY; R-GDP 1 CYCLE.
     Route: 065
     Dates: start: 201811, end: 201811
  14. RITUXIMAB. [Suspect]
     Active Substance: RITUXIMAB
     Dosage: 2ND LINE, R-GDP 1 CYCLE
     Route: 065
     Dates: start: 201811, end: 201811
  15. CARMUSTINE. [Concomitant]
     Active Substance: CARMUSTINE
     Indication: PRODUCT USED FOR UNKNOWN INDICATION
  16. DEXAMETHASONE. [Suspect]
     Active Substance: DEXAMETHASONE
     Dosage: FURTHER LINES; R-DHAP 2 CYCLES
     Route: 065
     Dates: start: 201812, end: 201901

REACTIONS (3)
  - Haemoglobin decreased [Unknown]
  - Pneumonia influenzal [Unknown]
  - Tachyarrhythmia [Unknown]
